FAERS Safety Report 22132934 (Version 1)
Quarter: 2023Q1

REPORT INFORMATION
  Report Type: Other
  Country: NL (occurrence: None)
  Receive Date: 20230323
  Receipt Date: 20230323
  Transmission Date: 20230418
  Serious: No
  Sender: FDA-Public Use
  Company Number: NL-ROCHE-3316158

PATIENT
  Age: 53 Year
  Sex: Female
  Weight: 87 kg

DRUGS (3)
  1. OCRELIZUMAB [Suspect]
     Active Substance: OCRELIZUMAB
     Indication: Relapsing-remitting multiple sclerosis
     Dosage: SUBSEQUENT DOSE ON 24/MAY/2019
     Route: 042
     Dates: start: 20190510, end: 20190510
  2. OCRELIZUMAB [Suspect]
     Active Substance: OCRELIZUMAB
     Dosage: SUBSEQUENT DOSE ON 19/JUN/2020, 18/AUG/2021, 07/JAN/2021, 16/FEB/2022, 15/SEP/2022, 17/MAR/2023.
     Route: 042
     Dates: start: 20191108, end: 20191108
  3. ACETAMINOPHEN [Concomitant]
     Active Substance: ACETAMINOPHEN
     Route: 048

REACTIONS (1)
  - Cholelithiasis [Recovered/Resolved]

NARRATIVE: CASE EVENT DATE: 20221101
